FAERS Safety Report 9630859 (Version 1)
Quarter: 2013Q4

REPORT INFORMATION
  Report Type: Spontaneous
  Country: US (occurrence: None)
  Receive Date: 20131016
  Receipt Date: 20131016
  Transmission Date: 20140711
  Serious: Yes (Hospitalization)
  Sender: FDA-Public Use
  Company Number: None

PATIENT
  Age: 69 Year
  Sex: Male
  Weight: 90.2 kg

DRUGS (2)
  1. ENOXAPARIN [Suspect]
     Indication: DEEP VEIN THROMBOSIS
     Dates: start: 20130922, end: 20130927
  2. WARFARIN [Suspect]
     Indication: DEEP VEIN THROMBOSIS
     Dosage: MG EVERY DAY PO
     Dates: start: 20130727, end: 20130921

REACTIONS (5)
  - Haematochezia [None]
  - Dizziness [None]
  - Tachycardia [None]
  - Dyspnoea [None]
  - Haemoglobin decreased [None]
